FAERS Safety Report 12725340 (Version 1)
Quarter: 2016Q3

REPORT INFORMATION
  Report Type: Spontaneous
  Country: US (occurrence: US)
  Receive Date: 20160908
  Receipt Date: 20160908
  Transmission Date: 20161109
  Serious: Yes (Hospitalization)
  Sender: FDA-Public Use
  Company Number: US-ELI_LILLY_AND_COMPANY-US201608014435

PATIENT
  Age: 79 Year
  Sex: Male

DRUGS (7)
  1. LIPITOR [Concomitant]
     Active Substance: ATORVASTATIN CALCIUM
  2. CIALIS [Suspect]
     Active Substance: TADALAFIL
     Dosage: 20 MG, PRN
     Route: 048
     Dates: start: 20160827
  3. DIOVAN [Concomitant]
     Active Substance: VALSARTAN
  4. CIALIS [Suspect]
     Active Substance: TADALAFIL
     Indication: ERECTILE DYSFUNCTION
     Dosage: 20 MG, QD
     Route: 048
     Dates: start: 201606
  5. NIFEDIPINE. [Concomitant]
     Active Substance: NIFEDIPINE
  6. CIALIS [Suspect]
     Active Substance: TADALAFIL
     Dosage: 20 MG, EACH EVENING
     Route: 048
  7. CIALIS [Suspect]
     Active Substance: TADALAFIL
     Dosage: 5 MG, EACH MORNING
     Route: 048

REACTIONS (4)
  - Intestinal obstruction [Unknown]
  - Drug ineffective [Unknown]
  - Dyspepsia [Not Recovered/Not Resolved]
  - Incorrect dose administered [Unknown]

NARRATIVE: CASE EVENT DATE: 201606
